FAERS Safety Report 6688847-2 (Version None)
Quarter: 2010Q2

REPORT INFORMATION
  Report Type: 
  Country: None (occurrence: None)
  Receive Date: 20100420
  Receipt Date: 20100406
  Transmission Date: 20101027
  Serious: Yes (Other)
  Sender: FDA-Public Use
  Company Number: BR-ELI_LILLY_AND_COMPANY-BR201004001434

PATIENT
  Sex: Female
  Weight: 40 kg

DRUGS (3)
  1. FORTEO [Suspect]
     Indication: OSTEOPOROSIS
     Dosage: 20 UG, DAILY (1/D)
     Route: 065
  2. OMEPRAZOLE [Concomitant]
     Dosage: UNK, DAILY (1/D)
     Route: 065
  3. VITAMINS [Concomitant]
     Dosage: UNK, DAILY (1/D)
     Route: 065

REACTIONS (4)
  - HAEMORRHAGE [None]
  - LIMB INJURY [None]
  - ROAD TRAFFIC ACCIDENT [None]
  - URINARY TRACT INFECTION [None]
